FAERS Safety Report 11165989 (Version 3)
Quarter: 2015Q2

REPORT INFORMATION
  Report Type: Spontaneous
  Country: HU (occurrence: HU)
  Receive Date: 20150604
  Receipt Date: 20150622
  Transmission Date: 20150821
  Serious: Yes (Hospitalization)
  Sender: FDA-Public Use
  Company Number: ALCN2015HU003257

PATIENT
  Sex: Female

DRUGS (6)
  1. SYSTANE BALANCE [Suspect]
     Active Substance: PROPYLENE GLYCOL
     Indication: DRY EYE
     Dosage: UNK
     Route: 047
     Dates: end: 20150522
  2. SYSTANE BALANCE [Suspect]
     Active Substance: PROPYLENE GLYCOL
     Dosage: UNK
     Dates: end: 20150522
  3. SYSTANE BALANCE [Suspect]
     Active Substance: PROPYLENE GLYCOL
     Dosage: UNK
     Dates: start: 20150524, end: 20150524
  4. SYSTANE BALANCE [Suspect]
     Active Substance: PROPYLENE GLYCOL
     Dosage: UNK
     Dates: start: 20150524, end: 20150524
  5. SYSTANE BALANCE [Suspect]
     Active Substance: PROPYLENE GLYCOL
     Dosage: UNK
     Route: 047
     Dates: start: 20150524, end: 20150524
  6. SYSTANE BALANCE [Suspect]
     Active Substance: PROPYLENE GLYCOL
     Dosage: UNK
     Dates: end: 20150522

REACTIONS (4)
  - Fall [Unknown]
  - Dizziness [Unknown]
  - Ocular hyperaemia [Unknown]
  - Malaise [Unknown]

NARRATIVE: CASE EVENT DATE: 20150522
